FAERS Safety Report 26095666 (Version 1)
Quarter: 2025Q4

REPORT INFORMATION
  Report Type: Spontaneous
  Country: US (occurrence: US)
  Receive Date: 20251127
  Receipt Date: 20251127
  Transmission Date: 20260118
  Serious: Yes (Other)
  Sender: ABBVIE
  Company Number: US-ABBVIE-6565552

PATIENT
  Age: 41 Year
  Sex: Female
  Weight: 69 kg

DRUGS (1)
  1. LILETTA [Suspect]
     Active Substance: LEVONORGESTREL
     Indication: Heavy menstrual bleeding
     Dosage: TIME INTERVAL: AS NECESSARY
     Route: 015
     Dates: start: 20250129, end: 20251125

REACTIONS (4)
  - Heavy menstrual bleeding [Recovered/Resolved]
  - Thrombosis [Recovered/Resolved]
  - Device expulsion [Not Recovered/Not Resolved]
  - Muscle spasms [Recovered/Resolved]

NARRATIVE: CASE EVENT DATE: 20250129
